FAERS Safety Report 20687388 (Version 1)
Quarter: 2022Q2

REPORT INFORMATION
  Report Type: Spontaneous
  Country: CZ (occurrence: CZ)
  Receive Date: 20220408
  Receipt Date: 20220408
  Transmission Date: 20220721
  Serious: Yes (Hospitalization)
  Sender: FDA-Public Use
  Company Number: CZ-SUN PHARMACEUTICAL INDUSTRIES LTD-2022R1-331931

PATIENT
  Sex: Female
  Weight: 45.5 kg

DRUGS (1)
  1. PAMIDRONATE [Suspect]
     Active Substance: PAMIDRONATE DISODIUM
     Indication: Chronic recurrent multifocal osteomyelitis
     Dosage: UNK (FOR THREE CONSECUTIVE DAYS)
     Route: 042

REACTIONS (4)
  - Fatigue [Recovering/Resolving]
  - Pyrexia [Recovering/Resolving]
  - Influenza like illness [Recovering/Resolving]
  - C-reactive protein increased [Unknown]
